FAERS Safety Report 4414468-8 (Version None)
Quarter: 2004Q3

REPORT INFORMATION
  Report Type: 
  Country: None (occurrence: None)
  Receive Date: 20040729
  Receipt Date: 20040715
  Transmission Date: 20050211
  Serious: Yes (Congenital Anomaly)
  Sender: FDA-Public Use
  Company Number: 2004-DE-03922GD

PATIENT

DRUGS (2)
  1. NAPROXEN [Suspect]
     Dosage: IU
     Route: 015
  2. CLOMIPRAMINE HCL [Suspect]
     Dosage: IU

REACTIONS (2)
  - DRUG EXPOSURE DURING PREGNANCY [None]
  - EBSTEIN'S ANOMALY [None]
